FAERS Safety Report 13732381 (Version 2)
Quarter: 2017Q4

REPORT INFORMATION
  Report Type: Spontaneous
  Country: US (occurrence: US)
  Receive Date: 20170707
  Receipt Date: 20171010
  Transmission Date: 20180320
  Serious: No
  Sender: FDA-Public Use
  Company Number: US-SA-2017SA100358

PATIENT
  Age: 89 Year
  Sex: Male
  Weight: 68.03 kg

DRUGS (3)
  1. SARNA [Concomitant]
     Indication: PRURITUS
     Route: 065
  2. DUPIXENT [Suspect]
     Active Substance: DUPILUMAB
     Indication: PRURITUS GENERALISED
     Dosage: FORM: SYRINGE
     Route: 065
     Dates: start: 2017
  3. DUPIXENT [Suspect]
     Active Substance: DUPILUMAB
     Indication: PRURITUS GENERALISED
     Dosage: FORM: SYRINGE
     Route: 065
     Dates: start: 20170522, end: 20170522

REACTIONS (1)
  - Drug ineffective [Unknown]
